FAERS Safety Report 7014812-1 (Version None)
Quarter: 2010Q3

REPORT INFORMATION
  Report Type: 
  Country: None (occurrence: None)
  Receive Date: 20100927
  Receipt Date: 20100922
  Transmission Date: 20110219
  Serious: Yes (Other)
  Sender: FDA-Public Use
  Company Number: AU-BAYER-201040269GPV

PATIENT

DRUGS (2)
  1. NEXAVAR [Suspect]
     Indication: HEPATIC NEOPLASM MALIGNANT
     Route: 048
  2. TACROLIMUS [Concomitant]
     Indication: LIVER TRANSPLANT

REACTIONS (2)
  - RASH GENERALISED [None]
  - RESPIRATORY DISORDER [None]
